FAERS Safety Report 6512488-0 (Version None)
Quarter: 2009Q4

REPORT INFORMATION
  Report Type: 
  Country: None (occurrence: None)
  Receive Date: 20091222
  Receipt Date: 20091214
  Transmission Date: 20100525
  Serious: Yes (Other)
  Sender: FDA-Public Use
  Company Number: US-AMGEN-QUU380286

PATIENT
  Sex: Female

DRUGS (1)
  1. ENBREL [Suspect]
     Indication: RHEUMATOID ARTHRITIS
     Route: 058
     Dates: start: 20010501

REACTIONS (3)
  - DRUG HYPERSENSITIVITY [None]
  - INTRA-ABDOMINAL HAEMORRHAGE [None]
  - TOOTH INFECTION [None]
